FAERS Safety Report 9665591 (Version 1)
Quarter: 2013Q4

REPORT INFORMATION
  Report Type: Spontaneous
  Country: US (occurrence: None)
  Receive Date: 20131031
  Receipt Date: 20131031
  Transmission Date: 20140711
  Serious: Yes (Hospitalization)
  Sender: FDA-Public Use
  Company Number: None

PATIENT
  Age: 64 Year
  Sex: Male
  Weight: 89.6 kg

DRUGS (2)
  1. DISULFIRAM [Suspect]
     Indication: ALCOHOL ABUSE
     Route: 048
     Dates: start: 20130721
  2. ACETAMINOPHEN\HYDROCODONE [Suspect]
     Indication: PAIN
     Dosage: 1 TAB PRN
     Route: 048
     Dates: start: 20130307

REACTIONS (13)
  - Headache [None]
  - Dyspnoea [None]
  - Pain [None]
  - Retching [None]
  - Migraine [None]
  - Nausea [None]
  - Abdominal pain [None]
  - Flushing [None]
  - Alcohol interaction [None]
  - Hypovolaemia [None]
  - Vomiting [None]
  - Drug interaction [None]
  - Treatment noncompliance [None]
